FAERS Safety Report 6013524-0 (Version None)
Quarter: 2008Q4

REPORT INFORMATION
  Report Type: 
  Country: None (occurrence: None)
  Receive Date: 20081219
  Receipt Date: 20081210
  Transmission Date: 20090506
  Serious: Yes (Hospitalization, Other)
  Sender: FDA-Public Use
  Company Number: PHHY2008FR31673

PATIENT
  Sex: Male

DRUGS (9)
  1. TEGRETOL [Suspect]
     Indication: EPILEPSY
     Dosage: UNK
  2. ENALAPRIL MALEATE [Suspect]
     Dosage: 2 DOSES DAILY
     Dates: start: 20080701, end: 20080910
  3. ENALAPRIL MALEATE [Suspect]
     Dosage: 10 MG
     Dates: end: 20080925
  4. ISOSORBIDE DINITRATE [Suspect]
     Dosage: 20 MG DAILY
  5. TORSEMIDE [Suspect]
     Dosage: 5 MG
     Route: 048
     Dates: start: 20080901, end: 20080925
  6. MOPRAL [Concomitant]
     Dosage: 10 MG
  7. SIMVASTATIN [Concomitant]
  8. TICLID [Concomitant]
     Dosage: 250 MG
  9. ZYLORIC [Concomitant]

REACTIONS (5)
  - BALANCE DISORDER [None]
  - DIZZINESS [None]
  - DRUG LEVEL INCREASED [None]
  - GAIT DISTURBANCE [None]
  - ORTHOSTATIC HYPOTENSION [None]
